FAERS Safety Report 5107157-8 (Version None)
Quarter: 2006Q3

REPORT INFORMATION
  Report Type: 
  Country: None (occurrence: None)
  Receive Date: 20060731
  Receipt Date: 20060407
  Transmission Date: 20061208
  Serious: No
  Sender: FDA-Public Use
  Company Number: 2006PV011820

PATIENT
  Age: 71 Year
  Sex: Female
  Weight: 87.5442 kg

DRUGS (14)
  1. BYETTA [Suspect]
     Indication: DIABETES MELLITUS NON-INSULIN-DEPENDENT
     Dosage: SEE IMAGE
     Route: 058
     Dates: start: 20060317, end: 20060323
  2. BYETTA [Suspect]
     Indication: DIABETES MELLITUS NON-INSULIN-DEPENDENT
     Dosage: SEE IMAGE
     Route: 058
     Dates: start: 20060407
  3. METFORMIN HCL [Concomitant]
  4. HUMULIN 70/30 [Concomitant]
  5. ALLOPURINOL [Concomitant]
  6. NEXIUM [Concomitant]
  7. IRON [Concomitant]
  8. IV [Concomitant]
  9. BLOOD PRESSURE STUDY MEDICATION [Concomitant]
  10. FUROSEMIDE [Concomitant]
  11. LIPITOR [Concomitant]
  12. GABAPENTIN [Concomitant]
  13. METOLAZONE [Concomitant]
  14. KLOR-CON [Concomitant]

REACTIONS (5)
  - ANAEMIA [None]
  - GOUT [None]
  - MALAISE [None]
  - NAUSEA [None]
  - VOMITING [None]
